FAERS Safety Report 12671021 (Version 1)
Quarter: 2016Q3

REPORT INFORMATION
  Report Type: Spontaneous
  Country: GB (occurrence: GB)
  Receive Date: 20160822
  Receipt Date: 20160822
  Transmission Date: 20161109
  Serious: Yes (Life-Threatening, Hospitalization, Other)
  Sender: FDA-Public Use
  Company Number: GB-MACLEODS PHARMACEUTICALS US LTD-MAC2016003000

PATIENT

DRUGS (12)
  1. QUETIAPINE. [Interacting]
     Active Substance: QUETIAPINE
     Dosage: 150 MG, BID
     Route: 065
  2. QUETIAPINE. [Interacting]
     Active Substance: QUETIAPINE
     Dosage: 125 MG, BID
     Route: 065
  3. VENLAFAXINE [Interacting]
     Active Substance: VENLAFAXINE HYDROCHLORIDE
     Indication: MENTAL DISORDER
     Dosage: UNK
     Route: 065
  4. DIAZEPAM. [Concomitant]
     Active Substance: DIAZEPAM
     Indication: PRODUCT USED FOR UNKNOWN INDICATION
     Dosage: 2 MG, TID
     Route: 065
  5. ZOMORPH [Concomitant]
     Active Substance: MORPHINE SULFATE
     Indication: PRODUCT USED FOR UNKNOWN INDICATION
     Dosage: 20 MG, BID
     Route: 065
  6. QUETIAPINE. [Interacting]
     Active Substance: QUETIAPINE
     Dosage: 150 MG FOR HIS EVENING DOSE AND THEN THE FOLLOWING DAY, HE TOOK 150 MG BD
     Route: 065
  7. CLOMETHIOZOLE [Concomitant]
     Indication: PRODUCT USED FOR UNKNOWN INDICATION
     Dosage: 384 MG, QD CLOMETHIOZOLE 384 MG OD
     Route: 065
  8. DIAZEPAM. [Concomitant]
     Active Substance: DIAZEPAM
     Dosage: 2 MG, UNK
     Route: 065
  9. PREGABALIN. [Concomitant]
     Active Substance: PREGABALIN
     Indication: PRODUCT USED FOR UNKNOWN INDICATION
     Dosage: 300 MG, BID
     Route: 065
  10. QUETIAPINE. [Suspect]
     Active Substance: QUETIAPINE
     Indication: MENTAL DISORDER
     Dosage: 50 MG, BID
     Route: 065
  11. QUETIAPINE. [Interacting]
     Active Substance: QUETIAPINE
     Dosage: 100 MG, BID
     Route: 065
  12. VENLAFAXINE [Interacting]
     Active Substance: VENLAFAXINE HYDROCHLORIDE
     Dosage: 300 MG, QD (MR) (DOSE INCREASED TWO MONTHS AGO)
     Route: 065

REACTIONS (24)
  - Hypertonia [Recovered/Resolved]
  - Leukocytosis [Recovered/Resolved]
  - Hyperhidrosis [Recovered/Resolved]
  - Dysarthria [Recovered/Resolved]
  - Posture abnormal [Recovered/Resolved]
  - Myoclonus [Recovered/Resolved]
  - Aggression [Recovered/Resolved]
  - Tachypnoea [Recovered/Resolved]
  - Confusional state [Recovered/Resolved]
  - Amnesia [Recovered/Resolved]
  - Serotonin syndrome [Recovered/Resolved]
  - Dyskinesia [Recovered/Resolved]
  - Systemic inflammatory response syndrome [Recovered/Resolved]
  - Generalised tonic-clonic seizure [Recovered/Resolved]
  - Clonus [Recovered/Resolved]
  - Pyrexia [Recovered/Resolved]
  - Tardive dyskinesia [Recovered/Resolved]
  - Lactic acidosis [Recovered/Resolved]
  - Diarrhoea [Recovered/Resolved]
  - Drug interaction [Recovered/Resolved]
  - Malaise [Recovered/Resolved]
  - Agitation [Recovered/Resolved]
  - Circulatory collapse [Recovered/Resolved]
  - Tachycardia [Recovered/Resolved]
